FAERS Safety Report 14829023 (Version 2)
Quarter: 2018Q2

REPORT INFORMATION
  Report Type: Spontaneous
  Country: GB (occurrence: GB)
  Receive Date: 20180430
  Receipt Date: 20180510
  Transmission Date: 20180711
  Serious: Yes (Other)
  Sender: FDA-Public Use
  Company Number: GB-PFIZER INC-2018167066

PATIENT
  Age: 34 Year
  Sex: Male

DRUGS (5)
  1. ACETAZOLAMIDE. [Suspect]
     Active Substance: ACETAZOLAMIDE
     Indication: GLAUCOMA
     Dosage: 250 MG, 1X/DAY
     Route: 048
  2. TIMOLOL. [Suspect]
     Active Substance: TIMOLOL
     Indication: GLAUCOMA
     Dosage: 1 %, 1X/DAY
  3. LATANOPROST. [Suspect]
     Active Substance: LATANOPROST
     Indication: GLAUCOMA
     Dosage: UNK (AT NIGHT TO BOTH EYES)
     Route: 047
  4. CYCLODINE [Suspect]
     Active Substance: CLONIDINE HYDROCHLORIDE
     Indication: GLAUCOMA
     Dosage: UNK
  5. BRIMONIDINE [Suspect]
     Active Substance: BRIMONIDINE TARTRATE
     Indication: GLAUCOMA
     Dosage: 0.4 %, 1X/DAY

REACTIONS (1)
  - Blindness [Unknown]
